FAERS Safety Report 20029733 (Version 1)
Quarter: 2021Q4

REPORT INFORMATION
  Report Type: Spontaneous
  Country: US (occurrence: US)
  Receive Date: 20211103
  Receipt Date: 20211103
  Transmission Date: 20220303
  Serious: No
  Sender: FDA-Public Use
  Company Number: US-PFIZER INC-2021422187

PATIENT
  Age: 69 Year
  Sex: Male

DRUGS (1)
  1. CHANTIX [Suspect]
     Active Substance: VARENICLINE TARTRATE
     Dosage: UNK
     Dates: start: 20210329

REACTIONS (3)
  - Vomiting [Unknown]
  - Nausea [Unknown]
  - Illness [Unknown]

NARRATIVE: CASE EVENT DATE: 20210401
